FAERS Safety Report 22892549 (Version 3)
Quarter: 2023Q4

REPORT INFORMATION
  Report Type: Spontaneous
  Country: US (occurrence: US)
  Receive Date: 20230901
  Receipt Date: 20231116
  Transmission Date: 20240110
  Serious: Yes (Other)
  Sender: FDA-Public Use
  Company Number: US-UCBSA-2023043129

PATIENT
  Sex: Male

DRUGS (1)
  1. NAYZILAM [Suspect]
     Active Substance: MIDAZOLAM
     Indication: Product used for unknown indication
     Dosage: UNK
     Dates: start: 20230827

REACTIONS (2)
  - Seizure [Unknown]
  - Product primary packaging issue [Unknown]

NARRATIVE: CASE EVENT DATE: 20230827
